FAERS Safety Report 11299044 (Version 1)
Quarter: 2015Q3

REPORT INFORMATION
  Report Type: Spontaneous
  Country: US (occurrence: US)
  Receive Date: 20150722
  Receipt Date: 20150722
  Transmission Date: 20151125
  Serious: No
  Sender: FDA-Public Use
  Company Number: US-ELI_LILLY_AND_COMPANY-US201207000575

PATIENT
  Sex: Female
  Weight: 63.49 kg

DRUGS (5)
  1. METOPROLOL [Concomitant]
     Active Substance: METOPROLOL
  2. EFFIENT [Suspect]
     Active Substance: PRASUGREL HYDROCHLORIDE
     Indication: STENT PLACEMENT
     Dosage: 10 MG, QD
     Dates: start: 201201
  3. FISH OIL [Concomitant]
     Active Substance: FISH OIL
  4. BABY ASPIRIN [Concomitant]
     Active Substance: ASPIRIN
     Dosage: UNK UNK, QD
  5. ATORVASTATIN [Concomitant]
     Active Substance: ATORVASTATIN
     Dosage: 80 MG, QD

REACTIONS (2)
  - Incorrect product storage [Unknown]
  - Diarrhoea [Unknown]
